FAERS Safety Report 22094243 (Version 2)
Quarter: 2024Q3

REPORT INFORMATION
  Report Type: Report from Study
  Country: US (occurrence: US)
  Receive Date: 20230314
  Receipt Date: 20240726
  Transmission Date: 20241017
  Serious: Yes (Hospitalization)
  Sender: NOVARTIS
  Company Number: US-002147023-NVSC2023US054016

PATIENT
  Sex: Female

DRUGS (3)
  1. ENTRESTO [Suspect]
     Active Substance: SACUBITRIL\VALSARTAN
     Indication: Atrial fibrillation
     Dosage: 0.5 DOSAGE FORM, BID (1/2 TAB AM AND 1/2 TAB PM)
     Route: 048
  2. METFORMIN [Concomitant]
     Active Substance: METFORMIN HYDROCHLORIDE
     Indication: Product used for unknown indication
     Dosage: UNK
     Route: 065
  3. METOPROLOL [Concomitant]
     Active Substance: METOPROLOL
     Indication: Product used for unknown indication
     Dosage: UNK
     Route: 065

REACTIONS (10)
  - Pericardial effusion [Unknown]
  - Joint swelling [Unknown]
  - Hepatic steatosis [Unknown]
  - Cardiac failure [Unknown]
  - Hypotension [Unknown]
  - Heart rate increased [Unknown]
  - Rhinorrhoea [Unknown]
  - Constipation [Unknown]
  - Wrong technique in product usage process [Unknown]
  - Off label use [Unknown]
